FAERS Safety Report 18542047 (Version 1)
Quarter: 2020Q4

REPORT INFORMATION
  Report Type: Spontaneous
  Country: US (occurrence: US)
  Receive Date: 20201125
  Receipt Date: 20201125
  Transmission Date: 20210114
  Serious: No
  Sender: FDA-Public Use
  Company Number: US-TAKEDA-2020TUS051038

PATIENT
  Sex: Male
  Weight: 18 kg

DRUGS (12)
  1. VITAMIN B6 [Concomitant]
     Active Substance: PYRIDOXINE HYDROCHLORIDE
     Dosage: UNK
     Route: 065
  2. ZINC. [Concomitant]
     Active Substance: ZINC
     Dosage: UNK
     Route: 065
  3. DIAZEPAM. [Concomitant]
     Active Substance: DIAZEPAM
     Indication: SEVERE MYOCLONIC EPILEPSY OF INFANCY
     Dosage: UNK
     Route: 065
  4. TURMERIC [CURCUMA LONGA RHIZOME] [Concomitant]
     Active Substance: HERBALS\TURMERIC
     Dosage: UNK
     Route: 065
  5. CUVITRU [Suspect]
     Active Substance: HUMAN IMMUNOGLOBULIN G
     Indication: SEVERE MYOCLONIC EPILEPSY OF INFANCY
     Dosage: 8 GRAM, Q2WEEKS
     Route: 058
  6. CUVITRU [Suspect]
     Active Substance: HUMAN IMMUNOGLOBULIN G
     Indication: RESPIRATORY TRACT INFECTION
  7. KEPPRA [Concomitant]
     Active Substance: LEVETIRACETAM
     Indication: SEVERE MYOCLONIC EPILEPSY OF INFANCY
     Dosage: UNK
     Route: 065
  8. VITAMINE C [Concomitant]
     Active Substance: ASCORBIC ACID
     Dosage: UNK
     Route: 065
  9. PROBIOTIC [BIFIDOBACTERIUM BIFIDUM;BIFIDOBACTERIUM LACTIS;BIFIDOBACTER [Concomitant]
     Dosage: UNK
     Route: 065
  10. CARNITINE [Concomitant]
     Active Substance: CARNITINE
     Dosage: UNK
     Route: 048
  11. OMEGA 3 COMPLEX [FISH OIL;VITAMIN E NOS] [Concomitant]
     Dosage: UNK
     Route: 065
  12. MELATONIN [Concomitant]
     Active Substance: MELATONIN
     Dosage: UNK
     Route: 065

REACTIONS (3)
  - Ear infection [Not Recovered/Not Resolved]
  - Off label use [Unknown]
  - Pyrexia [Unknown]
